FAERS Safety Report 18221576 (Version 1)
Quarter: 2020Q3

REPORT INFORMATION
  Report Type: Spontaneous
  Country: US (occurrence: US)
  Receive Date: 20200902
  Receipt Date: 20200902
  Transmission Date: 20201103
  Serious: No
  Sender: FDA-Public Use
  Company Number: US-SA-2020SA235704

PATIENT

DRUGS (1)
  1. DUPIXENT [Suspect]
     Active Substance: DUPILUMAB
     Indication: DERMATITIS ATOPIC
     Dosage: 300 MG, QOW
     Route: 058
     Dates: start: 201912

REACTIONS (7)
  - Chest pain [Recovering/Resolving]
  - Skin exfoliation [Recovering/Resolving]
  - Peripheral swelling [Recovering/Resolving]
  - Onychoclasis [Recovering/Resolving]
  - Pigmentation disorder [Recovering/Resolving]
  - Rash [Recovering/Resolving]
  - Rash pustular [Recovering/Resolving]

NARRATIVE: CASE EVENT DATE: 202008
